FAERS Safety Report 15635543 (Version 1)
Quarter: 2018Q4

REPORT INFORMATION
  Report Type: Report from Study
  Country: IT (occurrence: IT)
  Receive Date: 20181120
  Receipt Date: 20181120
  Transmission Date: 20190205
  Serious: Yes (Life-Threatening)
  Sender: FDA-Public Use
  Company Number: IT-TEVA-2018-IT-976502

PATIENT
  Age: 86 Year
  Sex: Male

DRUGS (5)
  1. LARGACTIL [Suspect]
     Active Substance: CHLORPROMAZINE
     Route: 065
  2. RISPERIDONE. [Suspect]
     Active Substance: RISPERIDONE
     Dosage: 2 ML DAILY;
     Route: 065
  3. NORVASC [Concomitant]
     Active Substance: AMLODIPINE BESYLATE
     Route: 065
  4. OLANZAPINA TEVA [Suspect]
     Active Substance: OLANZAPINE
     Dosage: 10 MILLIGRAM DAILY;
     Route: 065
  5. DEPAKIN [Suspect]
     Active Substance: VALPROATE SODIUM
     Dosage: 1000 MILLIGRAM DAILY;
     Route: 065

REACTIONS (1)
  - Sopor [Recovering/Resolving]

NARRATIVE: CASE EVENT DATE: 20180905
